FAERS Safety Report 6171541-4 (Version None)
Quarter: 2009Q2

REPORT INFORMATION
  Report Type: 
  Country: None (occurrence: None)
  Receive Date: 20090428
  Receipt Date: 20090428
  Transmission Date: 20091009
  Serious: Yes (Other)
  Sender: FDA-Public Use
  Company Number: None

PATIENT
  Sex: Female
  Weight: 123.3 kg

DRUGS (1)
  1. OPTIRAY 320 [Suspect]
     Indication: COMPUTERISED TOMOGRAM
     Dosage: 4.0 CC
     Dates: start: 20090116, end: 20090116

REACTIONS (3)
  - DYSPNOEA [None]
  - PRURITUS [None]
  - SCREAMING [None]
